FAERS Safety Report 5823236-1 (Version None)
Quarter: 2008Q3

REPORT INFORMATION
  Report Type: 
  Country: None (occurrence: None)
  Receive Date: 20080725
  Receipt Date: 20080229
  Transmission Date: 20090109
  Serious: No
  Sender: FDA-Public Use
  Company Number: A0714372A

PATIENT
  Age: 80 Year
  Sex: Female

DRUGS (2)
  1. DYAZIDE [Suspect]
     Route: 048
  2. AVAPRO [Suspect]
     Route: 048

REACTIONS (2)
  - ARRHYTHMIA [None]
  - COUGH [None]
